FAERS Safety Report 18922652 (Version 1)
Quarter: 2021Q1

REPORT INFORMATION
  Report Type: Spontaneous
  Country: AU (occurrence: AU)
  Receive Date: 20210222
  Receipt Date: 20210222
  Transmission Date: 20210420
  Serious: Yes (Hospitalization)
  Sender: FDA-Public Use
  Company Number: AU-MYLANLABS-2021M1010054

PATIENT
  Sex: Female

DRUGS (1)
  1. LYZALON [Suspect]
     Active Substance: PREGABALIN
     Indication: PARAESTHESIA
     Dosage: 25 MILLIGRAM, BID
     Dates: start: 20210203

REACTIONS (3)
  - Blood sodium decreased [Unknown]
  - Nausea [Unknown]
  - Hospitalisation [Unknown]
